FAERS Safety Report 6835350-2 (Version None)
Quarter: 2010Q3

REPORT INFORMATION
  Report Type: 
  Country: None (occurrence: None)
  Receive Date: 20100713
  Receipt Date: 20100702
  Transmission Date: 20110219
  Serious: Yes (Hospitalization)
  Sender: FDA-Public Use
  Company Number: US-JNJFOC-20100606572

PATIENT
  Sex: Female
  Weight: 58.51 kg

DRUGS (22)
  1. BLINDED; GOLIMUMA [Suspect]
     Indication: RHEUMATOID ARTHRITIS
     Route: 058
  2. BLINDED; GOLIMUMA [Suspect]
     Route: 058
  3. BLINDED; GOLIMUMA [Suspect]
     Route: 058
  4. PLACEBO [Suspect]
     Indication: RHEUMATOID ARTHRITIS
     Route: 058
  5. PLACEBO [Suspect]
     Route: 058
  6. PLACEBO [Suspect]
     Route: 058
  7. METHOTREXATE [Concomitant]
     Indication: RHEUMATOID ARTHRITIS
     Route: 048
  8. PREDNISONE [Concomitant]
     Indication: RHEUMATOID ARTHRITIS
     Route: 048
  9. FOLIC ACID [Concomitant]
     Indication: NUTRITIONAL SUPPORT
     Route: 048
  10. VITAMIN D3 [Concomitant]
     Indication: NUTRITIONAL SUPPORT
     Route: 048
  11. CALCIUM W/VITAMIN D NOS [Concomitant]
     Indication: OSTEOPENIA
     Route: 048
  12. FOSAMAX [Concomitant]
     Indication: OSTEOPOROSIS
     Route: 048
  13. IRON [Concomitant]
     Indication: ANAEMIA
     Route: 048
  14. PRILOSEC [Concomitant]
     Indication: GASTROINTESTINAL DISORDER THERAPY
     Route: 048
  15. ATENOLOL [Concomitant]
     Indication: HYPERTENSION
     Route: 048
  16. ATENOLOL [Concomitant]
     Indication: TACHYCARDIA
     Route: 048
  17. PLETAL [Concomitant]
     Indication: HYPERTENSION
     Route: 048
  18. PLETAL [Concomitant]
     Indication: TACHYCARDIA
     Route: 048
  19. PLAVIX [Concomitant]
     Indication: CARDIOVASCULAR EVENT PROPHYLAXIS
     Route: 048
  20. ASPIRIN [Concomitant]
     Indication: CARDIOVASCULAR EVENT PROPHYLAXIS
     Route: 048
  21. TYLENOL (CAPLET) [Concomitant]
     Indication: RHEUMATOID ARTHRITIS
     Route: 048
  22. MULTI-VITAMINS [Concomitant]
     Indication: NUTRITIONAL SUPPORT
     Route: 048

REACTIONS (1)
  - GASTROINTESTINAL HAEMORRHAGE [None]
